FAERS Safety Report 23205519 (Version 1)
Quarter: 2023Q4

REPORT INFORMATION
  Report Type: Spontaneous
  Country: US (occurrence: US)
  Receive Date: 20231120
  Receipt Date: 20231120
  Transmission Date: 20240109
  Serious: Yes (Other)
  Sender: FDA-Public Use
  Company Number: US-PFIZER INC-202300372686

PATIENT
  Age: 69 Year
  Sex: Female

DRUGS (8)
  1. XELJANZ XR [Suspect]
     Active Substance: TOFACITINIB CITRATE
     Dosage: UNK
  2. ANASTROZOLE [Concomitant]
     Active Substance: ANASTROZOLE
  3. CLONIDINE [Concomitant]
     Active Substance: CLONIDINE
  4. HYDROCHLOROTHIAZIDE [Concomitant]
     Active Substance: HYDROCHLOROTHIAZIDE
  5. LOSARTAN [Concomitant]
     Active Substance: LOSARTAN
  6. PROLIA [Concomitant]
     Active Substance: DENOSUMAB
  7. METHOCARBAMOL [Concomitant]
     Active Substance: METHOCARBAMOL
  8. NICOTINE [Concomitant]
     Active Substance: NICOTINE
     Dosage: PATCH

REACTIONS (1)
  - Breast cancer female [Unknown]
